FAERS Safety Report 19352402 (Version 3)
Quarter: 2021Q2

REPORT INFORMATION
  Report Type: Spontaneous
  Country: JP (occurrence: JP)
  Receive Date: 20210601
  Receipt Date: 20210623
  Transmission Date: 20210717
  Serious: Yes (Death, Life-Threatening, Other)
  Sender: FDA-Public Use
  Company Number: JP-DSJP-DSJ-2021-115252AA

PATIENT
  Age: 52 Year
  Sex: Male
  Weight: 59 kg

DRUGS (4)
  1. LIXIANA OD TABLETS 60MG [Suspect]
     Active Substance: EDOXABAN TOSYLATE
     Indication: ATRIAL FIBRILLATION
     Dosage: 60 MG, QD AFTER BREAKFAST
     Route: 048
     Dates: start: 20210416, end: 20210511
  2. LIXIANA OD TABLETS 60MG [Suspect]
     Active Substance: EDOXABAN TOSYLATE
     Indication: THROMBOSIS
  3. CARVEDILOL. [Concomitant]
     Active Substance: CARVEDILOL
     Indication: HYPERTENSION
     Dosage: 10 MG, QD
     Route: 048
     Dates: start: 20200904, end: 20210511
  4. OLMESARTAN                         /01635402/ [Concomitant]
     Active Substance: OLMESARTAN MEDOXOMIL
     Indication: HYPERTENSION
     Dosage: 20 MG, QD
     Route: 048
     Dates: start: 20201030, end: 20210511

REACTIONS (5)
  - Cerebral haemorrhage [Fatal]
  - Haematuria [Fatal]
  - Pulmonary alveolar haemorrhage [Fatal]
  - Haemophagocytic lymphohistiocytosis [Unknown]
  - Systemic candida [Unknown]

NARRATIVE: CASE EVENT DATE: 202105
